FAERS Safety Report 4283608-6 (Version None)
Quarter: 2004Q1

REPORT INFORMATION
  Report Type: 
  Country: None (occurrence: None)
  Receive Date: 20040121
  Receipt Date: 20030908
  Transmission Date: 20041129
  Serious: Yes (Hospitalization)
  Sender: FDA-Public Use
  Company Number: A03200302074

PATIENT
  Age: 74 Year
  Sex: Female
  Weight: 63.5036 kg

DRUGS (6)
  1. PLAVIX [Suspect]
     Indication: RENAL DISORDER
     Dosage: 225 MG LOADING DOSE, FOLLOWED BY 75 MG QD THEREAFTER - ORAL
     Route: 048
     Dates: start: 20030530
  2. PLAVIX [Suspect]
     Indication: STENT PLACEMENT
     Dosage: 225 MG LOADING DOSE, FOLLOWED BY 75 MG QD THEREAFTER - ORAL
     Route: 048
     Dates: start: 20030530
  3. ACETYLSALICYLIC ACID SRT [Concomitant]
  4. PREDNISONE [Concomitant]
  5. METOPROLOL SUCCINATE [Concomitant]
  6. THYROID TAB [Concomitant]

REACTIONS (2)
  - ANGINA PECTORIS [None]
  - CEREBROVASCULAR ACCIDENT [None]
